FAERS Safety Report 19719469 (Version 1)
Quarter: 2021Q3

REPORT INFORMATION
  Report Type: Spontaneous
  Country: US (occurrence: US)
  Receive Date: 20210819
  Receipt Date: 20210819
  Transmission Date: 20211014
  Serious: Yes (Other)
  Sender: FDA-Public Use
  Company Number: US-CELGENEUS-USA-20210804149

PATIENT
  Sex: Female
  Weight: 44 kg

DRUGS (1)
  1. REVLIMID [Suspect]
     Active Substance: LENALIDOMIDE
     Indication: PLASMA CELL MYELOMA
     Dosage: 25 MILLIGRAM
     Route: 048
     Dates: start: 20210701

REACTIONS (4)
  - Papule [Unknown]
  - Asthenia [Unknown]
  - Hot flush [Unknown]
  - Pneumonia [Unknown]

NARRATIVE: CASE EVENT DATE: 2021
